FAERS Safety Report 9583453 (Version 1)
Quarter: 2013Q4

REPORT INFORMATION
  Report Type: Spontaneous
  Country: US (occurrence: US)
  Receive Date: 20131002
  Receipt Date: 20131002
  Transmission Date: 20140711
  Serious: No
  Sender: FDA-Public Use
  Company Number: US-AMGEN-USASP2013046858

PATIENT
  Age: 61 Year
  Sex: Female

DRUGS (10)
  1. ENBREL [Suspect]
     Indication: PRODUCT USED FOR UNKNOWN INDICATION
     Dosage: 50 MG, QWK
     Route: 058
  2. LANTUS [Concomitant]
     Dosage: 100 ML, UNK
  3. ATENOLOL [Concomitant]
     Dosage: 25 MG, UNK
  4. METFORMIN [Concomitant]
     Dosage: 1000 MG, UNK
  5. ASPIRIN [Concomitant]
     Dosage: 81 MG, UNK
  6. DIOVAN [Concomitant]
     Dosage: UNK, 160-12.5
  7. VERAPAMIL [Concomitant]
     Dosage: 360 MG, UNK
  8. VITAMIN E                          /00110501/ [Concomitant]
     Dosage: 1000 UNIT, UNK
  9. VITAMIN D                          /00107901/ [Concomitant]
     Dosage: 1000 UNIT, UNK
  10. BYETTA [Concomitant]
     Dosage: 10 MUG, UNK

REACTIONS (3)
  - Pain [Unknown]
  - Nasopharyngitis [Unknown]
  - Influenza [Unknown]
